FAERS Safety Report 23187029 (Version 1)
Quarter: 2023Q4

REPORT INFORMATION
  Report Type: Spontaneous
  Country: US (occurrence: None)
  Receive Date: 20231115
  Receipt Date: 20231115
  Transmission Date: 20240110
  Serious: Yes (Disabling)
  Sender: FDA-Public Use
  Company Number: None

PATIENT
  Age: 59 Year
  Sex: Female
  Weight: 72 kg

DRUGS (13)
  1. QULIPTA [Suspect]
     Active Substance: ATOGEPANT
     Indication: Migraine prophylaxis
     Dosage: OTHER QUANTITY : 1 TABLET(S);?FREQUENCY : DAILY;?
     Route: 048
     Dates: start: 20220920, end: 20231017
  2. ORENCIA [Concomitant]
     Active Substance: ABATACEPT
  3. METHOTREXATE [Concomitant]
     Active Substance: METHOTREXATE
  4. MEDROL [Concomitant]
     Active Substance: METHYLPREDNISOLONE
  5. ALBUTEROL [Concomitant]
     Active Substance: ALBUTEROL
  6. MAXALT [Concomitant]
     Active Substance: RIZATRIPTAN BENZOATE
  7. TRAMADOL [Concomitant]
     Active Substance: TRAMADOL\TRAMADOL HYDROCHLORIDE
  8. LORAZEPAM [Concomitant]
     Active Substance: LORAZEPAM
  9. CRESTOR [Concomitant]
     Active Substance: ROSUVASTATIN CALCIUM
  10. MELOXICAM [Concomitant]
     Active Substance: MELOXICAM
  11. VITAMIN D [Concomitant]
     Active Substance: VITAMIN D NOS
  12. CALCIUM CITRATE [Concomitant]
     Active Substance: CALCIUM CITRATE
  13. IBUPROFEN [Concomitant]
     Active Substance: IBUPROFEN

REACTIONS (10)
  - Irritable bowel syndrome [None]
  - Constipation [None]
  - Drug ineffective [None]
  - Weight decreased [None]
  - Impaired gastric emptying [None]
  - Feeling abnormal [None]
  - Therapy cessation [None]
  - Migraine [None]
  - Impaired quality of life [None]
  - Malnutrition [None]

NARRATIVE: CASE EVENT DATE: 20221101
